FAERS Safety Report 11058627 (Version 2)
Quarter: 2015Q2

REPORT INFORMATION
  Report Type: Spontaneous
  Country: DE (occurrence: None)
  Receive Date: 20150421
  Receipt Date: 20150506
  Transmission Date: 20150821
  Serious: Yes (Hospitalization)
  Sender: FDA-Public Use
  Company Number: DE-DEXPHARM-20150246

PATIENT
  Age: 30 Year
  Sex: Male

DRUGS (2)
  1. VOLTAREN [Suspect]
     Active Substance: DICLOFENAC SODIUM
  2. FLOXAL [Suspect]
     Active Substance: OFLOXACIN
     Route: 047

REACTIONS (5)
  - Skin disorder [None]
  - Condition aggravated [None]
  - Conjunctival erosion [None]
  - Drug ineffective [None]
  - Corneal deposits [None]
